FAERS Safety Report 12402302 (Version 3)
Quarter: 2016Q3

REPORT INFORMATION
  Report Type: Report from Study
  Country: JP (occurrence: JP)
  Receive Date: 20160525
  Receipt Date: 20160817
  Transmission Date: 20161109
  Serious: Yes (Other)
  Sender: FDA-Public Use
  Company Number: JP-PFIZER INC-2016263434

PATIENT
  Age: 57 Year
  Sex: Male
  Weight: 63 kg

DRUGS (58)
  1. ADRIACIN [Suspect]
     Active Substance: DOXORUBICIN HYDROCHLORIDE
     Dosage: 75 MG, UNK
     Route: 041
     Dates: start: 20160209, end: 20160209
  2. PREDONINE [Suspect]
     Active Substance: PREDNISOLONE\PREDNISOLONE ACETATE\PREDNISOLONE SODIUM SUCCINATE
     Dosage: 100 MG, UNK
     Route: 048
     Dates: start: 20160315, end: 20160319
  3. ONCOVIN [Suspect]
     Active Substance: VINCRISTINE SULFATE
     Dosage: 2 MG, UNK
     Route: 041
     Dates: start: 20151222, end: 20151222
  4. RITUXAN [Suspect]
     Active Substance: RITUXIMAB
     Dosage: 590 MG, UNK
     Route: 041
     Dates: start: 20160314, end: 20160314
  5. FINIBAX [Suspect]
     Active Substance: DORIPENEM MONOHYDRATE
     Indication: FEBRILE NEUTROPENIA
     Route: 041
  6. OFLOXACIN. [Concomitant]
     Active Substance: OFLOXACIN
     Indication: PEMPHIGUS
     Route: 047
  7. LANSOPRAZOLE OD [Concomitant]
     Active Substance: LANSOPRAZOLE
     Route: 048
  8. VALIXA [Concomitant]
     Active Substance: VALGANCICLOVIR
     Indication: CYTOMEGALOVIRUS VIRAEMIA
     Route: 048
  9. CEFPIROME SULFATE [Concomitant]
     Active Substance: CEFPIROME SULFATE
     Indication: FEBRILE NEUTROPENIA
     Route: 042
  10. PREDONINE [Suspect]
     Active Substance: PREDNISOLONE\PREDNISOLONE ACETATE\PREDNISOLONE SODIUM SUCCINATE
     Indication: NON-HODGKIN^S LYMPHOMA
     Dosage: 100 MG, UNK
     Route: 048
     Dates: start: 20151110, end: 20151114
  11. PREDONINE [Suspect]
     Active Substance: PREDNISOLONE\PREDNISOLONE ACETATE\PREDNISOLONE SODIUM SUCCINATE
     Dosage: 100 MG, UNK
     Route: 048
     Dates: start: 20151222, end: 20151226
  12. ONCOVIN [Suspect]
     Active Substance: VINCRISTINE SULFATE
     Dosage: 2 MG, UNK
     Route: 041
     Dates: start: 20160209, end: 20160209
  13. ENDOXAN [Suspect]
     Active Substance: CYCLOPHOSPHAMIDE
     Dosage: 1130 MG, UNK
     Route: 041
     Dates: start: 20160315, end: 20160315
  14. SENNOSIDE [Concomitant]
     Active Substance: SENNOSIDES
     Route: 048
  15. MAXIPIME [Concomitant]
     Active Substance: CEFEPIME HYDROCHLORIDE
     Indication: FEBRILE NEUTROPENIA
     Route: 042
  16. OMEGACIN [Concomitant]
     Active Substance: BIAPENEM
     Indication: FEBRILE NEUTROPENIA
     Route: 041
  17. G-LASTA [Suspect]
     Active Substance: PEGFILGRASTIM
     Dosage: 3.6 MG, UNK
     Route: 058
     Dates: start: 20160114, end: 20160114
  18. ONCOVIN [Suspect]
     Active Substance: VINCRISTINE SULFATE
     Dosage: 2 MG, UNK
     Route: 041
     Dates: start: 20160112, end: 20160112
  19. CANCIDAS [Concomitant]
     Active Substance: CASPOFUNGIN ACETATE
  20. G-LASTA [Suspect]
     Active Substance: PEGFILGRASTIM
     Dosage: 3.6 MG, UNK
     Route: 058
     Dates: start: 20151203, end: 20151203
  21. PREDONINE [Suspect]
     Active Substance: PREDNISOLONE\PREDNISOLONE ACETATE\PREDNISOLONE SODIUM SUCCINATE
     Dosage: 100 MG, UNK
     Route: 048
     Dates: start: 20160209, end: 20160213
  22. ONCOVIN [Suspect]
     Active Substance: VINCRISTINE SULFATE
     Dosage: 2 MG, UNK
     Route: 041
     Dates: start: 20160315, end: 20160315
  23. ENDOXAN [Suspect]
     Active Substance: CYCLOPHOSPHAMIDE
     Dosage: 1185 MG, UNK
     Route: 041
     Dates: start: 20151201, end: 20151201
  24. ENDOXAN [Suspect]
     Active Substance: CYCLOPHOSPHAMIDE
     Dosage: 1130 MG, UNK
     Route: 041
     Dates: start: 20151222, end: 20151222
  25. RITUXAN [Suspect]
     Active Substance: RITUXIMAB
     Dosage: 590 MG, UNK
     Route: 041
     Dates: start: 20160208, end: 20160208
  26. FLORID [Concomitant]
     Active Substance: MICONAZOLE
     Indication: PEMPHIGUS
     Route: 048
  27. SALAGEN [Concomitant]
     Active Substance: PILOCARPINE HYDROCHLORIDE
     Indication: PEMPHIGUS
     Route: 048
  28. G-LASTA [Suspect]
     Active Substance: PEGFILGRASTIM
     Dosage: 3.6 MG, UNK
     Route: 058
     Dates: start: 20151224, end: 20151224
  29. PREDONINE [Suspect]
     Active Substance: PREDNISOLONE\PREDNISOLONE ACETATE\PREDNISOLONE SODIUM SUCCINATE
     Dosage: 100 MG, UNK
     Route: 058
     Dates: start: 20160112, end: 20160116
  30. ONCOVIN [Suspect]
     Active Substance: VINCRISTINE SULFATE
     Dosage: 2 MG, UNK
     Route: 041
     Dates: start: 20151201, end: 20151201
  31. RITUXAN [Suspect]
     Active Substance: RITUXIMAB
     Dosage: 650 MG, UNK
     Route: 041
     Dates: start: 20151130, end: 20151130
  32. ITRIZOLE [Concomitant]
     Active Substance: ITRACONAZOLE
     Indication: PEMPHIGUS
     Route: 048
  33. ADRIACIN [Suspect]
     Active Substance: DOXORUBICIN HYDROCHLORIDE
     Dosage: 75 MG, UNK
     Route: 041
     Dates: start: 20151222, end: 20151222
  34. ONCOVIN [Suspect]
     Active Substance: VINCRISTINE SULFATE
     Indication: NON-HODGKIN^S LYMPHOMA
     Dosage: 2 MG, UNK
     Route: 041
     Dates: start: 20151110, end: 20151110
  35. MAGLAX [Concomitant]
     Active Substance: MAGNESIUM OXIDE
     Route: 048
  36. FUNGUARD [Concomitant]
     Active Substance: MICAFUNGIN SODIUM
     Indication: PEMPHIGUS
     Route: 041
  37. MUCOSAL [Concomitant]
     Indication: COUGH
     Route: 048
  38. MEDICON [Concomitant]
     Active Substance: DEXTROMETHORPHAN HYDROBROMIDE
     Indication: COUGH
     Route: 048
  39. NEO-MINOPHAGEN C [Concomitant]
     Active Substance: AMMONIUM GLYCYRRHIZATE
     Indication: LIVER DISORDER
     Route: 042
  40. ADRIACIN [Suspect]
     Active Substance: DOXORUBICIN HYDROCHLORIDE
     Indication: NON-HODGKIN^S LYMPHOMA
     Dosage: 86.5 MG, UNK
     Route: 041
     Dates: start: 20151110, end: 20151110
  41. ADRIACIN [Suspect]
     Active Substance: DOXORUBICIN HYDROCHLORIDE
     Dosage: 75 MG, UNK
     Route: 041
     Dates: start: 20160112, end: 20160112
  42. ADRIACIN [Suspect]
     Active Substance: DOXORUBICIN HYDROCHLORIDE
     Dosage: 75 MG, UNK
     Route: 041
     Dates: start: 20160315, end: 20160315
  43. G-LASTA [Suspect]
     Active Substance: PEGFILGRASTIM
     Indication: PROPHYLAXIS
     Dosage: 3.6 MG, UNK
     Route: 058
     Dates: start: 20151113, end: 20151113
  44. G-LASTA [Suspect]
     Active Substance: PEGFILGRASTIM
     Dosage: 3.6 MG, UNK
     Route: 058
     Dates: start: 20160211, end: 20160211
  45. PREDONINE [Suspect]
     Active Substance: PREDNISOLONE\PREDNISOLONE ACETATE\PREDNISOLONE SODIUM SUCCINATE
     Dosage: 100 MG, UNK
     Route: 048
     Dates: start: 20151201, end: 20151205
  46. ENDOXAN [Suspect]
     Active Substance: CYCLOPHOSPHAMIDE
     Indication: NON-HODGKIN^S LYMPHOMA
     Dosage: 1295 MG, UNK
     Route: 041
     Dates: start: 20151110, end: 20151110
  47. ENDOXAN [Suspect]
     Active Substance: CYCLOPHOSPHAMIDE
     Dosage: 1130 MG, UNK
     Route: 041
     Dates: start: 20160209, end: 20160209
  48. RITUXAN [Suspect]
     Active Substance: RITUXIMAB
     Indication: NON-HODGKIN^S LYMPHOMA
     Dosage: 675 MG, UNK
     Route: 041
     Dates: start: 20151112, end: 20151112
  49. RITUXAN [Suspect]
     Active Substance: RITUXIMAB
     Dosage: 590 MG, UNK
     Route: 041
     Dates: start: 20151221, end: 20151221
  50. RITUXAN [Suspect]
     Active Substance: RITUXIMAB
     Dosage: 590 MG, UNK
     Route: 041
     Dates: start: 20160108, end: 20160108
  51. SULFAMETHOXAZOLE AND TRIMETHOPRIM [Concomitant]
     Active Substance: SULFAMETHOXAZOLE\TRIMETHOPRIM
     Route: 048
  52. MECOBALAMIN [Concomitant]
     Active Substance: METHYLCOBALAMIN
     Route: 048
  53. NISSEKI POLYGLOBIN-N [Concomitant]
     Active Substance: HUMAN IMMUNOGLOBULIN G
     Indication: PEMPHIGUS
     Route: 042
  54. DENOSINE [Concomitant]
     Active Substance: GANCICLOVIR
     Indication: CYTOMEGALOVIRUS VIRAEMIA
     Route: 041
  55. ADRIACIN [Suspect]
     Active Substance: DOXORUBICIN HYDROCHLORIDE
     Dosage: 79 MG, UNK
     Route: 041
     Dates: start: 20151201, end: 20151201
  56. G-LASTA [Suspect]
     Active Substance: PEGFILGRASTIM
     Dosage: 3.6 MG, UNK
     Route: 058
     Dates: start: 20160317, end: 20160317
  57. ENDOXAN [Suspect]
     Active Substance: CYCLOPHOSPHAMIDE
     Dosage: 1130 MG, UNK
     Route: 041
     Dates: start: 20160112, end: 20160112
  58. FEBURIC [Concomitant]
     Active Substance: FEBUXOSTAT
     Route: 048

REACTIONS (10)
  - Febrile neutropenia [Recovered/Resolved]
  - Febrile neutropenia [Recovered/Resolved]
  - Pyrexia [Recovered/Resolved]
  - Pyrexia [Recovered/Resolved]
  - Cough [Recovered/Resolved]
  - Febrile neutropenia [Recovered/Resolved]
  - Cytomegalovirus viraemia [Recovered/Resolved]
  - Weight decreased [Not Recovered/Not Resolved]
  - Febrile neutropenia [Recovered/Resolved]
  - Liver disorder [Recovered/Resolved]

NARRATIVE: CASE EVENT DATE: 201511
